FAERS Safety Report 8761983 (Version 1)
Quarter: 2012Q4

REPORT INFORMATION
  Report Type: 
  Country: NL (occurrence: NL)
  Receive Date: 20120830
  Receipt Date: 20120830
  Transmission Date: 20130627
  Serious: Yes (Other)
  Sender: FDA-Public Use
  Company Number: NL-PFIZER INC-2012212364

PATIENT

DRUGS (1)
  1. ATORVASTATIN PFIZER [Suspect]
     Indication: MYOCARDIAL INFARCTION
     Dosage: UNK
     Dates: start: 201204

REACTIONS (3)
  - Myalgia [Recovered/Resolved]
  - Gait disturbance [Unknown]
  - Middle insomnia [Unknown]
